FAERS Safety Report 7335504-5 (Version None)
Quarter: 2011Q1

REPORT INFORMATION
  Report Type: 
  Country: None (occurrence: None)
  Receive Date: 20110301
  Receipt Date: 20110301
  Transmission Date: 20110831
  Serious: No
  Sender: FDA-Public Use
  Company Number: None

PATIENT
  Age: 48 Year
  Sex: Female
  Weight: 68.0396 kg

DRUGS (1)
  1. LEVOTHYROXINE SODIUM [Suspect]
     Dosage: ONCE A DAY
     Dates: start: 20020101, end: 20110222

REACTIONS (4)
  - HOT FLUSH [None]
  - PRODUCT QUALITY ISSUE [None]
  - ERYTHEMA [None]
  - PARAESTHESIA [None]
